FAERS Safety Report 5809345-1 (Version None)
Quarter: 2008Q3

REPORT INFORMATION
  Report Type: 
  Country: None (occurrence: None)
  Receive Date: 20080714
  Receipt Date: 20080703
  Transmission Date: 20090109
  Serious: Yes (Hospitalization, Other)
  Sender: FDA-Public Use
  Company Number: PHHY2008BR13360

PATIENT
  Sex: Male

DRUGS (2)
  1. VISKEN [Suspect]
     Dosage: UNK
     Route: 064
  2. OXYGEN [Suspect]

REACTIONS (14)
  - ANAEMIA [None]
  - COAGULOPATHY [None]
  - CONVULSION NEONATAL [None]
  - INCUBATOR THERAPY [None]
  - INFECTION [None]
  - JAUNDICE NEONATAL [None]
  - MECHANICAL VENTILATION [None]
  - NEONATAL RESPIRATORY DISTRESS SYNDROME [None]
  - OXYGEN SUPPLEMENTATION [None]
  - PHOTOTHERAPY [None]
  - PREMATURE BABY [None]
  - PULMONARY HAEMORRHAGE [None]
  - SMALL FOR DATES BABY [None]
  - TRANSFUSION [None]
